FAERS Safety Report 19255118 (Version 3)
Quarter: 2022Q2

REPORT INFORMATION
  Report Type: Spontaneous
  Country: None (occurrence: PT)
  Receive Date: 20210513
  Receipt Date: 20220503
  Transmission Date: 20220720
  Serious: Yes (Other)
  Sender: FDA-Public Use
  Company Number: PT-AKCEA THERAPEUTICS, INC.-2021IS001359

PATIENT
  Age: 44 Year
  Sex: Female
  Weight: 65.455 kg

DRUGS (2)
  1. TEGSEDI [Suspect]
     Active Substance: INOTERSEN SODIUM
     Indication: Amyloidosis senile
     Route: 058
     Dates: start: 20201112
  2. DEVICE [Suspect]
     Active Substance: DEVICE

REACTIONS (24)
  - Thrombocytopenia [Recovered/Resolved]
  - Escherichia infection [Unknown]
  - Red blood cell sedimentation rate increased [Unknown]
  - Blood cholesterol increased [Unknown]
  - Blood triglycerides increased [Unknown]
  - Glomerular filtration rate decreased [Unknown]
  - Blood chloride increased [Unknown]
  - Chromaturia [Unknown]
  - Urine abnormality [Unknown]
  - Nitrite urine present [Unknown]
  - Haemoglobin urine present [Unknown]
  - Urinary sediment present [Unknown]
  - White blood cells urine positive [Unknown]
  - Mean cell haemoglobin concentration increased [Unknown]
  - Blood bilirubin decreased [Unknown]
  - Protein total increased [Unknown]
  - Vitamin D decreased [Unknown]
  - Protein urine present [Unknown]
  - Albumin urine present [Unknown]
  - Specific gravity urine increased [Unknown]
  - Urinary tract infection [Recovered/Resolved]
  - Neurogenic bladder [Unknown]
  - Urinary retention [Unknown]
  - Dyslipidaemia [Unknown]

NARRATIVE: CASE EVENT DATE: 20210305
